FAERS Safety Report 14199544 (Version 2)
Quarter: 2017Q4

REPORT INFORMATION
  Report Type: Spontaneous
  Country: US (occurrence: US)
  Receive Date: 20171117
  Receipt Date: 20171127
  Transmission Date: 20180321
  Serious: Yes (Hospitalization, Other)
  Sender: FDA-Public Use
  Company Number: US-GLAXOSMITHKLINE-US2017GSK176062

PATIENT
  Age: 76 Year
  Sex: Female

DRUGS (2)
  1. FLOLAN [Suspect]
     Active Substance: EPOPROSTENOL SODIUM
     Indication: PULMONARY HYPERTENSION
     Dosage: 24 DF, CO
     Route: 042
     Dates: start: 20030707
  2. FLOLAN [Suspect]
     Active Substance: EPOPROSTENOL SODIUM
     Indication: PULMONARY HYPERTENSION

REACTIONS (8)
  - Hypotension [Unknown]
  - Altered state of consciousness [Unknown]
  - Hypoglycaemia [Unknown]
  - Fall [Unknown]
  - Blood pressure decreased [Unknown]
  - Joint injury [Unknown]
  - Suture insertion [Unknown]
  - Blood glucose decreased [Unknown]

NARRATIVE: CASE EVENT DATE: 20171112
